FAERS Safety Report 9549295 (Version 1)
Quarter: 2013Q2

REPORT INFORMATION
  Report Type: Spontaneous
  Country: US (occurrence: None)
  Receive Date: 20130627
  Receipt Date: 20130627
  Transmission Date: 20140414
  Serious: No
  Sender: FDA-Public Use
  Company Number: 1000045469

PATIENT
  Age: 74 Year
  Sex: Female

DRUGS (6)
  1. LINZESS [Suspect]
     Indication: CONSTIPATION
     Dosage: 145 MCG (145 MCG, 1 IN 1D), ORAL
     Route: 048
     Dates: start: 20130507
  2. ALLOPURINOL (ALLOPURINOL) (ALLOPURINOL) [Concomitant]
  3. VALSARTAN (VALSARTAN) (VALSARTAN) [Concomitant]
  4. LEVOTHROXINE (LEVOTHYROXINE SODIUM) (LEVOTHYROXINE SODIUM) [Concomitant]
  5. AMLODIPINE (AMLODIPINE) (AMLODIPINE) [Concomitant]
  6. LIPITOR (ATORVASTATIN CALCIUM) (ATORVASTATIN CALCIUM) [Concomitant]

REACTIONS (2)
  - Diarrhoea [None]
  - Abdominal pain upper [None]
